FAERS Safety Report 14667535 (Version 1)
Quarter: 2018Q1

REPORT INFORMATION
  Report Type: Other
  Country: IT (occurrence: IT)
  Receive Date: 20180322
  Receipt Date: 20180322
  Transmission Date: 20180509
  Serious: Yes (Other)
  Sender: FDA-Public Use
  Company Number: IT-ACCORD-064939

PATIENT
  Age: 80 Year
  Sex: Female

DRUGS (10)
  1. FUROSEMIDE. [Suspect]
     Active Substance: FUROSEMIDE
     Indication: HYPERTENSION
     Route: 048
     Dates: start: 20170530, end: 20170530
  2. MINIAS [Concomitant]
     Active Substance: LORMETAZEPAM
  3. CARDIOASPIRIN [Concomitant]
     Active Substance: ASPIRIN
  4. CONGESCOR [Concomitant]
     Active Substance: BISOPROLOL
  5. PAROXETINE. [Concomitant]
     Active Substance: PAROXETINE
  6. TRIATEC [Concomitant]
     Active Substance: RAMIPRIL
  7. PANTORC [Concomitant]
     Active Substance: PANTOPRAZOLE SODIUM
  8. KANRENOL [Concomitant]
     Active Substance: CANRENOATE POTASSIUM
  9. NITRODERM [Concomitant]
     Active Substance: NITROGLYCERIN
  10. SERTRALINE [Concomitant]
     Active Substance: SERTRALINE HYDROCHLORIDE

REACTIONS (1)
  - Hypotension [Unknown]

NARRATIVE: CASE EVENT DATE: 20170531
